FAERS Safety Report 18813586 (Version 2)
Quarter: 2021Q1

REPORT INFORMATION
  Report Type: Spontaneous
  Country: DE (occurrence: DE)
  Receive Date: 20210201
  Receipt Date: 20210315
  Transmission Date: 20210419
  Serious: Yes (Other)
  Sender: FDA-Public Use
  Company Number: DE-SUN PHARMACEUTICAL INDUSTRIES LTD-2021R1-276767

PATIENT
  Age: 27 Year
  Sex: Female
  Weight: 58 kg

DRUGS (5)
  1. DUAC [Suspect]
     Active Substance: BENZOYL PEROXIDE\CLINDAMYCIN PHOSPHATE
     Dosage: UNK
     Route: 065
  2. CETIRIZINE [Suspect]
     Active Substance: CETIRIZINE HYDROCHLORIDE
     Indication: ERYTHEMA
     Dosage: UNK
     Route: 065
  3. DUAC [Suspect]
     Active Substance: BENZOYL PEROXIDE\CLINDAMYCIN PHOSPHATE
     Indication: PRODUCT USED FOR UNKNOWN INDICATION
     Dosage: UNK
     Route: 065
     Dates: start: 20201211, end: 20201212
  4. DUAC [Suspect]
     Active Substance: BENZOYL PEROXIDE\CLINDAMYCIN PHOSPHATE
     Dosage: UNK
     Route: 065
  5. RYZEN [Suspect]
     Active Substance: CETIRIZINE HYDROCHLORIDE
     Indication: ERYTHEMA
     Dosage: UNK
     Route: 065

REACTIONS (12)
  - Skin irritation [Recovering/Resolving]
  - Chills [Unknown]
  - Drug ineffective [Unknown]
  - Swelling face [Recovering/Resolving]
  - Rash [Unknown]
  - Erythema [Recovering/Resolving]
  - Diarrhoea [Unknown]
  - Paraesthesia oral [Unknown]
  - Vomiting [Unknown]
  - Nausea [Unknown]
  - Feeling hot [Recovered/Resolved]
  - Poisoning [Unknown]
